FAERS Safety Report 7166012 (Version 2)
Quarter: 2014Q3

REPORT INFORMATION
  Report Type: Spontaneous
  Country: US (occurrence: None)
  Receive Date: 20091021
  Receipt Date: 20140919
  Transmission Date: 20150326
  Serious: Yes (Other)
  Sender: FDA-Public Use
  Company Number: 2009S1007732

PATIENT
  Age: 68 Year
  Sex: Male
  Weight: 85.28 kg

DRUGS (8)
  1. ASPIRIN (ACETYLSALICYLIC ACID) [Concomitant]
     Active Substance: ASPIRIN
  2. NACL (SODIUM CHLORIDE) [Concomitant]
  3. PHOSPHO-SODA [Suspect]
     Active Substance: SODIUM PHOSPHATE, DIBASIC\SODIUM PHOSPHATE, MONOBASIC
     Indication: COLONOSCOPY
     Dosage: 90 ML, 2 IN 24 HOURS
     Route: 048
     Dates: start: 20050324, end: 20050324
  4. TERAZOSIN HYDROCHLORIDE. [Concomitant]
     Active Substance: TERAZOSIN HYDROCHLORIDE
  5. DULCOLAX [Suspect]
     Active Substance: BISACODYL OR DOCUSATE SODIUM
     Indication: COLONOSCOPY
     Dosage: 3 IN 24 HOURS
     Route: 048
     Dates: start: 20050323, end: 20050323
  6. DETROL (TOLTERODINE L-TARTRATE) [Concomitant]
  7. PROSCAR [Concomitant]
     Active Substance: FINASTERIDE
  8. FLEET NOS [Suspect]
     Active Substance: BISACODYL OR GLYCERIN OR MINERAL OIL OR SODIUM PHOSPHATE, DIBASIC\SODIUM PHOSPHATE, MONOBASIC
     Indication: COLONOSCOPY
     Route: 054
     Dates: start: 20050325, end: 20050325

REACTIONS (5)
  - Dehydration [None]
  - Renal failure chronic [None]
  - Arteriosclerosis [None]
  - Renal failure acute [None]
  - Renal tubular necrosis [None]

NARRATIVE: CASE EVENT DATE: 20050422
